FAERS Safety Report 5475677-2 (Version None)
Quarter: 2007Q4

REPORT INFORMATION
  Report Type: 
  Country: None (occurrence: None)
  Receive Date: 20071003
  Receipt Date: 20071003
  Transmission Date: 20080405
  Serious: Yes (Other)
  Sender: FDA-Public Use
  Company Number: None

PATIENT
  Age: 4 Year
  Sex: Male
  Weight: 17.2367 kg

DRUGS (4)
  1. LIDOCAINE AND PRILOCAINE CREAM 2.5%/2.5% [Suspect]
     Indication: ANAESTHESIA
     Dosage: 1 APPLICATION 1 TIME A WEEK TOPICAL
     Route: 061
     Dates: start: 20070221
  2. LIDOCAINE AND PRILOCAINE CREAM 2.5%/2.5% [Suspect]
     Indication: ANAESTHESIA
     Dosage: 1 APPLICATION 1 TIME A WEEK TOPICAL
     Route: 061
     Dates: start: 20070228
  3. CLARINEX [Concomitant]
  4. ALLERGY SHOTS [Concomitant]

REACTIONS (2)
  - DRUG INEFFECTIVE [None]
  - INJECTION SITE ERYTHEMA [None]
